FAERS Safety Report 13701875 (Version 1)
Quarter: 2017Q2

REPORT INFORMATION
  Report Type: Spontaneous
  Country: FR (occurrence: FR)
  Receive Date: 20170629
  Receipt Date: 20170629
  Transmission Date: 20170830
  Serious: Yes (Other)
  Sender: FDA-Public Use
  Company Number: FR-HARRIS PHARMACEUTICAL-2017HAR00011

PATIENT
  Age: 51 Year
  Sex: Male
  Weight: 89 kg

DRUGS (6)
  1. FLUCONAZOLE. [Suspect]
     Active Substance: FLUCONAZOLE
     Indication: URINARY TRACT INFECTION
     Dosage: 800 MG, ONCE
     Route: 042
     Dates: start: 20160422, end: 20160422
  2. FLUCONAZOLE. [Suspect]
     Active Substance: FLUCONAZOLE
     Dosage: 400 MG, 1X/DAY
     Route: 042
     Dates: start: 20160423
  3. OXYCODONE [Suspect]
     Active Substance: OXYCODONE
     Dosage: 10 MG, 6X/DAY (Q4H) ^IMMEDIATE RELEASE^
     Route: 065
     Dates: start: 20160412, end: 20160423
  4. OXYCODONE [Suspect]
     Active Substance: OXYCODONE
     Dosage: 60 MG, Q12H ^SLOW RELEASE^
     Route: 065
     Dates: start: 20160412, end: 20160423
  5. DIAZEPAM. [Suspect]
     Active Substance: DIAZEPAM
     Dosage: 6 MG, UNK
     Route: 048
  6. PREGABALIN. [Suspect]
     Active Substance: PREGABALIN
     Dosage: 200 MG X 2
     Route: 048

REACTIONS (2)
  - Drug interaction [Recovered/Resolved]
  - Respiratory depression [Recovered/Resolved]

NARRATIVE: CASE EVENT DATE: 20160423
